FAERS Safety Report 4760324-5 (Version None)
Quarter: 2005Q3

REPORT INFORMATION
  Report Type: 
  Country: None (occurrence: None)
  Receive Date: 20050831
  Receipt Date: 20050815
  Transmission Date: 20060218
  Serious: Yes (Life-Threatening)
  Sender: FDA-Public Use
  Company Number: IE-2005-017002

PATIENT
  Age: 30 Year
  Sex: Male

DRUGS (3)
  1. ULTRAVIST 300 [Suspect]
     Indication: COMPUTERISED TOMOGRAM
     Dosage: 100 ML, 1 DOSE, INTRAVENOUS
     Route: 042
     Dates: start: 20050814, end: 20050814
  2. CYCLIMORPH (CYCLIZINE TARTRATE, MORPHINE TARTRATE) [Concomitant]
  3. TRAMADOL HCL [Concomitant]

REACTIONS (6)
  - ANAPHYLACTIC REACTION [None]
  - ANGIONEUROTIC OEDEMA [None]
  - HYPOTENSION [None]
  - OBSTRUCTIVE AIRWAYS DISORDER [None]
  - RESPIRATORY ARREST [None]
  - SHOCK [None]
